FAERS Safety Report 8425986-X (Version None)
Quarter: 2012Q2

REPORT INFORMATION
  Report Type: 
  Country: None (occurrence: None)
  Receive Date: 20120611
  Receipt Date: 20120606
  Transmission Date: 20120825
  Serious: Yes (Hospitalization)
  Sender: FDA-Public Use
  Company Number: US-BAYER-2011-080608

PATIENT
  Age: 42 Year
  Sex: Female
  Weight: 115 kg

DRUGS (13)
  1. YASMIN [Suspect]
     Indication: POLYCYSTIC OVARIES
     Dates: start: 20040601, end: 20090801
  2. DROSPIRENONE AND ETHINYL ESTRADIOL [Suspect]
     Dates: start: 20040601, end: 20090801
  3. METAGLIP [Concomitant]
  4. JANUMET [Concomitant]
     Indication: TYPE 2 DIABETES MELLITUS
     Dosage: UNK
     Dates: start: 20080101
  5. MULTI-VITAMIN [Concomitant]
     Dosage: UNK
     Dates: start: 20090616
  6. FISH OIL [Concomitant]
     Dosage: UNK
     Dates: start: 20090616
  7. DOXYCYCLINE [Concomitant]
     Dosage: 100 MG, BID
     Route: 048
     Dates: start: 20090616
  8. BYETTA [Concomitant]
  9. GLIPIZIDE [Concomitant]
     Indication: TYPE 2 DIABETES MELLITUS
     Dosage: UNK UNK, BID
     Dates: start: 20030101
  10. DIFLUCAN [Concomitant]
     Dosage: 150 MG,TAKE ONE AND REPEAT
     Route: 048
     Dates: start: 20090616
  11. PRILOSEC [Concomitant]
     Dosage: 20 MG, QD
  12. METFORMIN HCL [Concomitant]
     Indication: TYPE 2 DIABETES MELLITUS
     Dosage: 500 MG, PRN
     Dates: start: 20030101
  13. HYDROCHLOROTHIAZIDE [Concomitant]
     Dosage: 25 MG, PRN
     Dates: start: 20070401

REACTIONS (7)
  - BILIARY DYSKINESIA [None]
  - ANXIETY [None]
  - GALLBLADDER DISORDER [None]
  - EMOTIONAL DISTRESS [None]
  - CHOLECYSTITIS CHRONIC [None]
  - INJURY [None]
  - PAIN [None]
